FAERS Safety Report 9130728 (Version 1)
Quarter: 2013Q1

REPORT INFORMATION
  Report Type: Spontaneous
  Country: US (occurrence: US)
  Receive Date: 20130301
  Receipt Date: 20130301
  Transmission Date: 20140127
  Serious: Yes (Other)
  Sender: FDA-Public Use
  Company Number: US-BAYER-2013-023368

PATIENT
  Sex: Female

DRUGS (1)
  1. MIRENA [Suspect]
     Indication: HORMONE LEVEL ABNORMAL
     Dosage: 20 MCG/24HR, UNK
     Route: 015
     Dates: start: 201210

REACTIONS (6)
  - Genital haemorrhage [None]
  - Insomnia [None]
  - Weight increased [None]
  - Breast swelling [None]
  - Breast pain [None]
  - Off label use [None]
